FAERS Safety Report 4504624-2 (Version None)
Quarter: 2004Q4

REPORT INFORMATION
  Report Type: 
  Country: None (occurrence: None)
  Receive Date: 20041116
  Receipt Date: 20041103
  Transmission Date: 20050328
  Serious: Yes (Disabling)
  Sender: FDA-Public Use
  Company Number: 2004-BP-11355YA

PATIENT
  Age: 36 Year
  Sex: Male

DRUGS (4)
  1. OMNIC CAPSULES (TAMSULOSIN) (NR) [Suspect]
     Indication: BENIGN PROSTATIC HYPERPLASIA
     Dosage: 0.4 MG
     Route: 048
     Dates: start: 20040519, end: 20040610
  2. OMNIC CAPSULES (TAMSULOSIN) (NR) [Suspect]
     Indication: BENIGN PROSTATIC HYPERPLASIA
     Dosage: 0.4 MG
     Route: 048
  3. XATRAL (NR) [Suspect]
     Indication: BENIGN PROSTATIC HYPERPLASIA
     Dosage: 10 MG (NR)
     Route: 048
     Dates: start: 20040519, end: 20040610
  4. XATRAL (NR) [Suspect]
     Indication: BENIGN PROSTATIC HYPERPLASIA
     Dosage: 10 MG (NR)
     Route: 048

REACTIONS (5)
  - AGITATION [None]
  - CONVULSION [None]
  - MALAISE [None]
  - PALPITATIONS [None]
  - TREMOR [None]
